FAERS Safety Report 5579144-7 (Version None)
Quarter: 2007Q4

REPORT INFORMATION
  Report Type: 
  Country: None (occurrence: None)
  Receive Date: 20071227
  Receipt Date: 20071227
  Transmission Date: 20080405
  Serious: Yes (Hospitalization)
  Sender: FDA-Public Use
  Company Number: None

PATIENT
  Sex: Female
  Weight: 23.7 kg

DRUGS (7)
  1. CYCLOPHOSPHAMIDE [Suspect]
     Dosage: 720 MG
  2. CYTARABINE [Suspect]
     Dosage: 432 MG
  3. DEXAMETHASONE TAB [Suspect]
     Dosage: 151 MG
  4. DOXORUBICIN HYDROCHLORIDE [Suspect]
     Dosage: 54 MG
  5. PEG-L-ASPARAGINASE (K-H) [Suspect]
     Dosage: 1800 IU
  6. THIOGUANINE [Suspect]
     Dosage: 605 MG
  7. VINCRISTINE SULFATE [Suspect]
     Dosage: 3.3 MG

REACTIONS (6)
  - ASCITES [None]
  - PYREXIA [None]
  - RETROGRADE PORTAL VEIN FLOW [None]
  - THROMBOCYTOPENIA [None]
  - VENOOCCLUSIVE DISEASE [None]
  - WEIGHT INCREASED [None]
